FAERS Safety Report 11983388 (Version 1)
Quarter: 2016Q1

REPORT INFORMATION
  Report Type: Spontaneous
  Country: US (occurrence: US)
  Receive Date: 20160201
  Receipt Date: 20160201
  Transmission Date: 20160526
  Serious: No
  Sender: FDA-Public Use
  Company Number: US-BAYER-2016-017332

PATIENT
  Age: 64 Year
  Sex: Male

DRUGS (2)
  1. FINACEA [Suspect]
     Active Substance: AZELAIC ACID
  2. FINACEA [Suspect]
     Active Substance: AZELAIC ACID
     Indication: PAPULOPUSTULAR ROSACEA
     Dosage: UNK
     Route: 061
     Dates: start: 20160113

REACTIONS (1)
  - Application site dryness [Not Recovered/Not Resolved]

NARRATIVE: CASE EVENT DATE: 20160113
